FAERS Safety Report 10010400 (Version 1)
Quarter: 2014Q1

REPORT INFORMATION
  Report Type: Spontaneous
  Country: US (occurrence: US)
  Receive Date: 20140314
  Receipt Date: 20140314
  Transmission Date: 20141002
  Serious: No
  Sender: FDA-Public Use
  Company Number: US-BIOGENIDEC-2014BI022755

PATIENT
  Sex: Male

DRUGS (2)
  1. TYSABRI [Suspect]
     Indication: MULTIPLE SCLEROSIS
     Route: 042
     Dates: start: 20140114
  2. AMPYRA [Concomitant]
     Indication: MULTIPLE SCLEROSIS

REACTIONS (13)
  - Cognitive disorder [Unknown]
  - Gait disturbance [Unknown]
  - Bladder disorder [Unknown]
  - Insomnia [Unknown]
  - Hypotonia [Unknown]
  - Depressed mood [Unknown]
  - Balance disorder [Unknown]
  - Impaired driving ability [Unknown]
  - Underweight [Unknown]
  - Memory impairment [Unknown]
  - Drug ineffective [Unknown]
  - Asthenia [Unknown]
  - Multiple sclerosis [Unknown]
